FAERS Safety Report 23865972 (Version 4)
Quarter: 2024Q3

REPORT INFORMATION
  Report Type: Report from Study
  Country: US (occurrence: US)
  Receive Date: 20240517
  Receipt Date: 20240909
  Transmission Date: 20241017
  Serious: Yes (Other)
  Sender: NOVARTIS
  Company Number: US-002147023-NVSC2023US268093

PATIENT
  Sex: Female

DRUGS (2)
  1. KESIMPTA [Suspect]
     Active Substance: OFATUMUMAB
     Indication: Product used for unknown indication
     Dosage: UNK
     Route: 065
  2. TYLENOL [Concomitant]
     Active Substance: ACETAMINOPHEN
     Indication: Product used for unknown indication
     Dosage: UNK
     Route: 065

REACTIONS (8)
  - Basal cell carcinoma [Unknown]
  - Prescription drug used without a prescription [Unknown]
  - Therapeutic response unexpected [Unknown]
  - Muscle spasms [Unknown]
  - Psoriasis [Unknown]
  - Scar [Unknown]
  - Temperature intolerance [Not Recovered/Not Resolved]
  - Asthenia [Unknown]
